FAERS Safety Report 17891971 (Version 1)
Quarter: 2020Q2

REPORT INFORMATION
  Report Type: Spontaneous
  Country: BR (occurrence: BR)
  Receive Date: 20200612
  Receipt Date: 20200612
  Transmission Date: 20200714
  Serious: Yes (Other)
  Sender: FDA-Public Use
  Company Number: BR-009507513-2006BRA000840

PATIENT
  Age: 21 Year
  Sex: Female

DRUGS (5)
  1. NASONEX [Suspect]
     Active Substance: MOMETASONE FUROATE
     Indication: RHINITIS
     Dosage: 2 SPRAY IN EACH NOSTRIL IN THE MORNING AND AT NIGHT
     Dates: start: 2012
  2. PREDSIM SOLUTION [Concomitant]
     Indication: LABYRINTHITIS
  3. STEZZA [Suspect]
     Active Substance: ESTRADIOL\NOMEGESTROL ACETATE
     Indication: OVARIAN CYST
     Dosage: UNK (24 ACTIVE TABLETS AND 4 PLACEBO TABLETS)
     Route: 048
     Dates: start: 2016
  4. NASONEX [Suspect]
     Active Substance: MOMETASONE FUROATE
     Indication: LABYRINTHITIS
  5. PREDSIM SOLUTION [Concomitant]
     Indication: RHINITIS
     Dosage: 5 MILLILITER, BID
     Dates: end: 20200531

REACTIONS (10)
  - Menorrhagia [Unknown]
  - Seizure [Recovering/Resolving]
  - Abdominal pain [Unknown]
  - Product use in unapproved indication [Unknown]
  - Product dose omission [Unknown]
  - Acne [Recovering/Resolving]
  - Migraine [Recovering/Resolving]
  - Product availability issue [Unknown]
  - Product use in unapproved indication [Unknown]
  - Headache [Unknown]

NARRATIVE: CASE EVENT DATE: 2012
